FAERS Safety Report 21193328 (Version 1)
Quarter: 2022Q3

REPORT INFORMATION
  Report Type: Spontaneous
  Country: US (occurrence: US)
  Receive Date: 20220810
  Receipt Date: 20220810
  Transmission Date: 20221027
  Serious: No
  Sender: FDA-Public Use
  Company Number: US-REDHILL-2022RDH00121

PATIENT
  Age: 70 Year
  Sex: Male
  Weight: 72.562 kg

DRUGS (1)
  1. TALICIA [Suspect]
     Active Substance: AMOXICILLIN\OMEPRAZOLE MAGNESIUM\RIFABUTIN
     Indication: Helicobacter infection
     Dosage: 4 PILLS, 3X/DAY
     Route: 048
     Dates: start: 20220616

REACTIONS (4)
  - Productive cough [Not Recovered/Not Resolved]
  - Faeces soft [Not Recovered/Not Resolved]
  - Nasal congestion [Unknown]
  - Headache [Unknown]

NARRATIVE: CASE EVENT DATE: 20220601
